FAERS Safety Report 24014144 (Version 1)
Quarter: 2024Q2

REPORT INFORMATION
  Report Type: Spontaneous
  Country: US (occurrence: None)
  Receive Date: 20240625
  Receipt Date: 20240625
  Transmission Date: 20240716
  Serious: No
  Sender: FDA-Public Use
  Company Number: None

PATIENT
  Age: 49 Year
  Sex: Female

DRUGS (1)
  1. ADEMPAS [Suspect]
     Active Substance: RIOCIGUAT
     Indication: Pulmonary arterial hypertension
     Dosage: FREQUENCY : 3 TIMES A DAY;?
     Route: 048
     Dates: start: 20211214

REACTIONS (7)
  - Back pain [None]
  - Nephrolithiasis [None]
  - Aortic dissection [None]
  - Aneurysm [None]
  - Diverticulitis [None]
  - Intestinal obstruction [None]
  - Urinary tract infection [None]

NARRATIVE: CASE EVENT DATE: 20240625
